FAERS Safety Report 6571847-0 (Version None)
Quarter: 2010Q1

REPORT INFORMATION
  Report Type: 
  Country: None (occurrence: None)
  Receive Date: 20100205
  Receipt Date: 20100128
  Transmission Date: 20100710
  Serious: Yes (Hospitalization)
  Sender: FDA-Public Use
  Company Number: TW-JNJFOC-20090704908

PATIENT
  Sex: Male
  Weight: 70 kg

DRUGS (7)
  1. BLINDED; CNTO 1275 [Suspect]
     Indication: PSORIASIS
     Route: 058
  2. BLINDED; CNTO 1275 [Suspect]
     Route: 058
  3. PLACEBO [Suspect]
     Indication: PSORIASIS
     Route: 058
  4. PLACEBO [Suspect]
     Route: 058
  5. ISONIAZID [Concomitant]
     Route: 048
  6. HYDROXYZINE [Concomitant]
     Route: 048
  7. ACETAMINOPHEN [Concomitant]
     Route: 048

REACTIONS (1)
  - ANAL ABSCESS [None]
